FAERS Safety Report 6142734-7 (Version None)
Quarter: 2009Q2

REPORT INFORMATION
  Report Type: 
  Country: None (occurrence: None)
  Receive Date: 20090403
  Receipt Date: 20090325
  Transmission Date: 20091009
  Serious: Yes (Other)
  Sender: FDA-Public Use
  Company Number: US-AMGEN-KDL331052

PATIENT
  Sex: Male

DRUGS (5)
  1. ENBREL [Suspect]
     Indication: PSORIATIC ARTHROPATHY
     Dates: end: 20090128
  2. METHOTREXATE [Concomitant]
  3. CRESTOR [Concomitant]
  4. FOLIC ACID [Concomitant]
  5. VITAMIN D [Concomitant]

REACTIONS (9)
  - BLOOD ALBUMIN DECREASED [None]
  - BLOOD CHOLESTEROL INCREASED [None]
  - HYPERTENSION [None]
  - HYPOAESTHESIA [None]
  - LEUKOCYTOCLASTIC VASCULITIS [None]
  - OEDEMA PERIPHERAL [None]
  - PARAESTHESIA [None]
  - PSORIASIS [None]
  - URINE ANALYSIS ABNORMAL [None]
